FAERS Safety Report 9773655 (Version 3)
Quarter: 2014Q1

REPORT INFORMATION
  Report Type: Spontaneous
  Country: US (occurrence: US)
  Receive Date: 20131219
  Receipt Date: 20140106
  Transmission Date: 20141002
  Serious: Yes (Death, Other)
  Sender: FDA-Public Use
  Company Number: US-GILEAD-2013-0090298

PATIENT
  Sex: Male

DRUGS (3)
  1. LETAIRIS [Suspect]
     Indication: PULMONARY ARTERIAL HYPERTENSION
     Dosage: 10 MG, QD
     Route: 048
     Dates: start: 201109
  2. WARFARIN SODIUM [Concomitant]
  3. MORPHIN                            /00036303/ [Concomitant]

REACTIONS (5)
  - Pulmonary embolism [Fatal]
  - Bladder cancer [Unknown]
  - Neoplasm [Unknown]
  - Dyspnoea [Unknown]
  - Local swelling [Unknown]
